FAERS Safety Report 18070611 (Version 3)
Quarter: 2021Q3

REPORT INFORMATION
  Report Type: Spontaneous
  Country: ZA (occurrence: ZA)
  Receive Date: 20200727
  Receipt Date: 20210803
  Transmission Date: 20211014
  Serious: Yes (Other)
  Sender: FDA-Public Use
  Company Number: ZA-AMGEN-ZAFSP2018146956

PATIENT
  Age: 71 Year
  Sex: Female
  Weight: 84.25 kg

DRUGS (1)
  1. ENBREL [Suspect]
     Active Substance: ETANERCEPT
     Indication: PRODUCT USED FOR UNKNOWN INDICATION
     Dosage: 50 MG, WEEKLY
     Route: 058
     Dates: start: 20170313

REACTIONS (8)
  - C-reactive protein increased [Recovered/Resolved]
  - Arthropod bite [Recovered/Resolved]
  - Skin laceration [Recovered/Resolved]
  - Condition aggravated [Recovered/Resolved]
  - Animal scratch [Recovered/Resolved]
  - Tooth infection [Recovered/Resolved]
  - Sinusitis [Recovered/Resolved]
  - Treatment failure [Unknown]

NARRATIVE: CASE EVENT DATE: 20170801
